FAERS Safety Report 25822224 (Version 1)
Quarter: 2025Q3

REPORT INFORMATION
  Report Type: Spontaneous
  Country: US (occurrence: US)
  Receive Date: 20250919
  Receipt Date: 20250919
  Transmission Date: 20251021
  Serious: No
  Sender: VIVUS
  Company Number: US-VIVUS LLC-2024V1001334

PATIENT
  Sex: Female

DRUGS (1)
  1. QSYMIA [Suspect]
     Active Substance: PHENTERMINE HYDROCHLORIDE\TOPIRAMATE
     Indication: Product used for unknown indication
     Dosage: 1 DOSAGE FORMS, QD
     Route: 048

REACTIONS (5)
  - Diffuse alopecia [Not Recovered/Not Resolved]
  - Feeling jittery [Not Recovered/Not Resolved]
  - Stress [Not Recovered/Not Resolved]
  - Disturbance in attention [Not Recovered/Not Resolved]
  - Anxiety [Not Recovered/Not Resolved]
